FAERS Safety Report 5412422-0 (Version None)
Quarter: 2007Q3

REPORT INFORMATION
  Report Type: 
  Country: None (occurrence: None)
  Receive Date: 20070813
  Receipt Date: 20070809
  Transmission Date: 20080115
  Serious: Yes (Death, Hospitalization, Disabling, Other)
  Sender: FDA-Public Use
  Company Number: PHBS2002JP14750

PATIENT
  Age: 61 Year
  Sex: Male

DRUGS (11)
  1. GLEEVEC [Suspect]
     Indication: GASTROINTESTINAL STROMAL TUMOUR
     Dosage: 100 MG/D
     Route: 048
     Dates: start: 20030101
  2. GLEEVEC [Suspect]
     Dosage: 200 MG/D
     Route: 048
     Dates: start: 20030311, end: 20030324
  3. GLEEVEC [Suspect]
     Dosage: 100 MG/D
     Route: 048
     Dates: start: 20030401, end: 20030101
  4. GLEEVEC [Suspect]
     Dosage: 200 MG, BID
     Route: 048
     Dates: start: 20021013, end: 20021126
  5. GLEEVEC [Suspect]
     Dosage: 100 MG, Q48H
     Route: 048
     Dates: start: 20030601, end: 20040212
  6. BERIZYM [Concomitant]
     Dosage: 3 G/D
     Route: 048
     Dates: start: 20000608
  7. LAC B [Concomitant]
     Dosage: 1.5 G/D
     Route: 048
     Dates: end: 20021127
  8. URSO 250 [Suspect]
     Dosage: 300 MG/D
     Route: 048
     Dates: start: 20001021
  9. ZYLORIC ^FAES^ [Concomitant]
     Dosage: 200 MG/D
     Route: 048
     Dates: start: 20020608
  10. AMOBAN [Concomitant]
     Dosage: 1 DF/D
     Route: 048
     Dates: start: 20011221, end: 20021116
  11. CYANAMIDE [Concomitant]
     Dosage: 3 ML/D
     Route: 048
     Dates: start: 20011221, end: 20020316

REACTIONS (12)
  - BLOOD LACTATE DEHYDROGENASE INCREASED [None]
  - COUGH [None]
  - DIARRHOEA [None]
  - DYSPNOEA [None]
  - EYELID OEDEMA [None]
  - HYPERSENSITIVITY [None]
  - INTERSTITIAL LUNG DISEASE [None]
  - LUNG NEOPLASM MALIGNANT [None]
  - METASTASES TO CENTRAL NERVOUS SYSTEM [None]
  - METASTASES TO LYMPH NODES [None]
  - PNEUMONITIS [None]
  - PYREXIA [None]
